FAERS Safety Report 25806858 (Version 1)
Quarter: 2025Q3

REPORT INFORMATION
  Report Type: Spontaneous
  Country: EU (occurrence: EU)
  Receive Date: 20250916
  Receipt Date: 20250916
  Transmission Date: 20251021
  Serious: Yes (Other)
  Sender: MYLAN
  Company Number: EU-MYLANLABS-2025M1078585

PATIENT
  Age: 56 Year
  Sex: Female

DRUGS (16)
  1. FORMOTEROL [Suspect]
     Active Substance: FORMOTEROL
     Indication: Asthma
  2. FORMOTEROL [Suspect]
     Active Substance: FORMOTEROL
     Route: 065
  3. FORMOTEROL [Suspect]
     Active Substance: FORMOTEROL
     Route: 065
  4. FORMOTEROL [Suspect]
     Active Substance: FORMOTEROL
  5. PREDNISOLONE [Suspect]
     Active Substance: PREDNISOLONE
     Indication: Eosinophilic cellulitis
  6. PREDNISOLONE [Suspect]
     Active Substance: PREDNISOLONE
     Route: 048
  7. PREDNISOLONE [Suspect]
     Active Substance: PREDNISOLONE
     Route: 048
  8. PREDNISOLONE [Suspect]
     Active Substance: PREDNISOLONE
  9. MONTELUKAST [Suspect]
     Active Substance: MONTELUKAST
     Indication: Asthma
  10. MONTELUKAST [Suspect]
     Active Substance: MONTELUKAST
     Route: 065
  11. MONTELUKAST [Suspect]
     Active Substance: MONTELUKAST
     Route: 065
  12. MONTELUKAST [Suspect]
     Active Substance: MONTELUKAST
  13. OMALIZUMAB [Suspect]
     Active Substance: OMALIZUMAB
     Indication: Asthma
     Dosage: 600 MILLIGRAM, BIWEEKLY
  14. OMALIZUMAB [Suspect]
     Active Substance: OMALIZUMAB
     Dosage: 600 MILLIGRAM, BIWEEKLY
     Route: 065
  15. OMALIZUMAB [Suspect]
     Active Substance: OMALIZUMAB
     Dosage: 600 MILLIGRAM, BIWEEKLY
     Route: 065
  16. OMALIZUMAB [Suspect]
     Active Substance: OMALIZUMAB
     Dosage: 600 MILLIGRAM, BIWEEKLY

REACTIONS (1)
  - Drug ineffective [Unknown]
